FAERS Safety Report 9333439 (Version 1)
Quarter: 2013Q2

REPORT INFORMATION
  Report Type: Spontaneous
  Country: US (occurrence: None)
  Receive Date: 20130604
  Receipt Date: 20130604
  Transmission Date: 20140414
  Serious: Yes (Hospitalization)
  Sender: FDA-Public Use
  Company Number: JPI-P-032165

PATIENT
  Age: 58 Year
  Sex: Female
  Weight: 65.41 kg

DRUGS (9)
  1. XYREM (500 MILLIGRAM/MILLILITERS, SOLUTION) (SODIUM OXYBATE) [Suspect]
     Indication: SOMNOLENCE
     Route: 048
     Dates: start: 20091218
  2. ATIVAN [Concomitant]
  3. HYDROCODONE-ACETAMINOPHEN [Concomitant]
  4. AMLODIPINE BESYLATE AND BENAZEPRIL HCL [Concomitant]
  5. PREGABALIN [Concomitant]
  6. METOPROLOL TARTRATE [Concomitant]
  7. ESOMEPRAZOLE MAGNESIUM [Concomitant]
  8. PARCOPA [Concomitant]
  9. OXYCODONE AND ACETAMINOPEN [Concomitant]

REACTIONS (1)
  - Spinal fusion surgery [None]
